FAERS Safety Report 9563525 (Version 1)
Quarter: 2013Q1

REPORT INFORMATION
  Report Type: Spontaneous
  Country: US (occurrence: None)
  Receive Date: 20121227
  Receipt Date: 20121227
  Transmission Date: 20140127
  Serious: Yes (Hospitalization)
  Sender: FDA-Public Use
  Company Number: PHEH2012US010193

PATIENT
  Sex: Female

DRUGS (1)
  1. MYFORTIC [Suspect]
     Dosage: 180 MG (3 EVERY 12 HOURS, 1 BID), ORAL)
     Route: 048

REACTIONS (3)
  - Staphylococcal infection [None]
  - Hypertension [None]
  - Localised infection [None]
